FAERS Safety Report 4461978-3 (Version None)
Quarter: 2004Q3

REPORT INFORMATION
  Report Type: 
  Country: None (occurrence: None)
  Receive Date: 20040927
  Receipt Date: 20040927
  Transmission Date: 20050211
  Serious: Yes (Life-Threatening, Hospitalization)
  Sender: FDA-Public Use
  Company Number: None

PATIENT
  Age: 5 Year
  Sex: Female

DRUGS (1)
  1. SULFONAMIDE [Suspect]
     Indication: KIDNEY INFECTION
     Dates: start: 19850501, end: 19850519

REACTIONS (4)
  - CONSTIPATION [None]
  - DYSURIA [None]
  - ERYTHEMA MULTIFORME [None]
  - STEVENS-JOHNSON SYNDROME [None]
